FAERS Safety Report 5909287-7 (Version None)
Quarter: 2008Q4

REPORT INFORMATION
  Report Type: 
  Country: None (occurrence: None)
  Receive Date: 20081006
  Receipt Date: 20080922
  Transmission Date: 20090506
  Serious: Yes (Other)
  Sender: FDA-Public Use
  Company Number: BR-PFIZER INC-2008081458

PATIENT
  Sex: Male
  Weight: 70 kg

DRUGS (1)
  1. CHANTIX [Suspect]
     Indication: SMOKING CESSATION THERAPY
     Route: 048
     Dates: start: 20080701, end: 20080901

REACTIONS (6)
  - ABDOMINAL PAIN UPPER [None]
  - ANOREXIA [None]
  - DIARRHOEA [None]
  - DYSSTASIA [None]
  - IMPAIRED WORK ABILITY [None]
  - VISION BLURRED [None]
